FAERS Safety Report 20713420 (Version 1)
Quarter: 2022Q2

REPORT INFORMATION
  Report Type: Spontaneous
  Country: US (occurrence: None)
  Receive Date: 20220414
  Receipt Date: 20220414
  Transmission Date: 20220721
  Serious: Yes (Hospitalization)
  Sender: FDA-Public Use
  Company Number: None

PATIENT
  Age: 68 Year
  Sex: Female
  Weight: 57.11 kg

DRUGS (12)
  1. CAPECITABINE [Suspect]
     Active Substance: CAPECITABINE
     Indication: Tonsil cancer
     Dosage: FREQUENCY : TWICE A DAY;?
     Route: 048
  2. CAPECITABINE [Suspect]
     Active Substance: CAPECITABINE
     Dosage: FREQUENCY : TWICE A DAY;?
     Route: 048
  3. ALBUTEROL [Concomitant]
     Active Substance: ALBUTEROL
  4. ARMOUR THYROID [Concomitant]
     Active Substance: THYROID, PORCINE
  5. MAGNESIUM [Concomitant]
     Active Substance: MAGNESIUM
  6. MARINOL [Concomitant]
     Active Substance: DRONABINOL
  7. VITAMINS [Concomitant]
     Active Substance: VITAMINS
  8. PROCHLORPERAZINE [Concomitant]
     Active Substance: PROCHLORPERAZINE
  9. HERBALS\TURMERIC [Concomitant]
     Active Substance: HERBALS\TURMERIC
  10. VITAMIN D [Concomitant]
     Active Substance: VITAMIN D NOS
  11. XARELTO [Concomitant]
     Active Substance: RIVAROXABAN
  12. ZINC [Concomitant]
     Active Substance: ZINC

REACTIONS (2)
  - Cerebral haemorrhage [None]
  - Hypotension [None]
